FAERS Safety Report 19414017 (Version 1)
Quarter: 2021Q2

REPORT INFORMATION
  Report Type: Spontaneous
  Country: US (occurrence: US)
  Receive Date: 20210615
  Receipt Date: 20210615
  Transmission Date: 20210717
  Serious: No
  Sender: FDA-Public Use
  Company Number: US-TARO-2020TAR01270

PATIENT

DRUGS (1)
  1. BETAMETHASONE DIPROPIONATE CREAM USP 0.05% [Suspect]
     Active Substance: BETAMETHASONE DIPROPIONATE
     Indication: RASH
     Dosage: UNK
     Route: 065

REACTIONS (1)
  - Condition aggravated [Unknown]
